FAERS Safety Report 8020902-7 (Version None)
Quarter: 2011Q4

REPORT INFORMATION
  Report Type: 
  Country: None (occurrence: None)
  Receive Date: 20111229
  Receipt Date: 20111229
  Transmission Date: 20120403
  Serious: Yes (Life-Threatening, Hospitalization)
  Sender: FDA-Public Use
  Company Number: None

PATIENT
  Age: 60 Year
  Sex: Male
  Weight: 131.8 kg

DRUGS (2)
  1. SULFAMETHOXAZOLE AND TRIMETHOPRIM [Suspect]
     Indication: INFECTION
     Dosage: MG PO
     Route: 048
     Dates: start: 20111001, end: 20111008
  2. GLYBURIDE [Suspect]
     Indication: DIABETES MELLITUS
     Dosage: MG BID PO
     Route: 048
     Dates: start: 20060412

REACTIONS (1)
  - HYPOGLYCAEMIA [None]
